FAERS Safety Report 7017708-4 (Version None)
Quarter: 2010Q3

REPORT INFORMATION
  Report Type: 
  Country: None (occurrence: None)
  Receive Date: 20100928
  Receipt Date: 20100916
  Transmission Date: 20110219
  Serious: Yes (Death, Hospitalization)
  Sender: FDA-Public Use
  Company Number: TH-JNJFOC-20100905831

PATIENT
  Age: 71 Year
  Sex: Female
  Weight: 60 kg

DRUGS (6)
  1. REMICADE [Suspect]
     Indication: PSORIASIS
     Route: 042
  2. REMICADE [Suspect]
     Route: 042
  3. REMICADE [Suspect]
     Route: 042
  4. METHOTREXATE [Concomitant]
     Indication: PSORIASIS
  5. CYCLOSPORINE [Concomitant]
     Indication: PSORIASIS
  6. NEOTIGASON [Concomitant]
     Indication: PSORIASIS

REACTIONS (2)
  - DYSPNOEA [None]
  - H1N1 INFLUENZA [None]
